FAERS Safety Report 7924210-1 (Version None)
Quarter: 2011Q4

REPORT INFORMATION
  Report Type: 
  Country: None (occurrence: None)
  Receive Date: 20111117
  Receipt Date: 20110215
  Transmission Date: 20120403
  Serious: No
  Sender: FDA-Public Use
  Company Number: US-AMGEN-USASP2011008844

PATIENT
  Age: 58 Year
  Sex: Female
  Weight: 75.75 kg

DRUGS (6)
  1. MELOXICAM [Concomitant]
     Dosage: 15 MG, UNK
  2. ESTROGEL [Concomitant]
  3. MULTIVITAMIN                       /00097801/ [Concomitant]
  4. ENBREL [Suspect]
     Indication: PRODUCT USED FOR UNKNOWN INDICATION
     Dosage: 50 MG, QWK
     Route: 058
  5. FISH OIL [Concomitant]
  6. CALCIUM [Concomitant]

REACTIONS (1)
  - PNEUMONIA [None]
